FAERS Safety Report 6982113-3 (Version None)
Quarter: 2010Q3

REPORT INFORMATION
  Report Type: 
  Country: None (occurrence: None)
  Receive Date: 20100914
  Receipt Date: 20091215
  Transmission Date: 20110219
  Serious: No
  Sender: FDA-Public Use
  Company Number: US-PFIZER INC-2009278962

PATIENT
  Sex: Female
  Weight: 74 kg

DRUGS (7)
  1. LYRICA [Suspect]
     Indication: FIBROMYALGIA
     Dosage: 75 MG, 2X/DAY
  2. PAXIL [Concomitant]
     Dosage: UNK
  3. XANAX [Concomitant]
     Indication: ANXIETY
     Dosage: UNK
  4. VICODIN [Concomitant]
     Dosage: UNK
  5. SOMA [Concomitant]
     Dosage: UNK
  6. INDERAL [Concomitant]
     Indication: CARDIAC DISORDER
     Dosage: UNK
  7. ELAVIL [Concomitant]
     Indication: SLEEP DISORDER
     Dosage: UNK

REACTIONS (8)
  - BALANCE DISORDER [None]
  - CONSTIPATION [None]
  - DISTURBANCE IN ATTENTION [None]
  - DRY MOUTH [None]
  - DYSKINESIA [None]
  - INCREASED APPETITE [None]
  - VISION BLURRED [None]
  - WEIGHT INCREASED [None]
